FAERS Safety Report 12759821 (Version 1)
Quarter: 2016Q3

REPORT INFORMATION
  Report Type: Spontaneous
  Country: DK (occurrence: DK)
  Receive Date: 20160919
  Receipt Date: 20160919
  Transmission Date: 20161109
  Serious: Yes (Other)
  Sender: FDA-Public Use
  Company Number: DK-B.I. PHARMACEUTICALS,INC./RIDGEFIELD-2016-BI-60054DB

PATIENT
  Sex: Male

DRUGS (1)
  1. PRADAXA [Suspect]
     Active Substance: DABIGATRAN ETEXILATE MESYLATE
     Indication: THROMBOSIS PROPHYLAXIS
     Dosage: 300 MG
     Route: 048
     Dates: start: 201405, end: 201408

REACTIONS (15)
  - Fatigue [Unknown]
  - Abdominal discomfort [Unknown]
  - Renal failure [Unknown]
  - Decreased appetite [Unknown]
  - Dry throat [Unknown]
  - Thirst [Unknown]
  - Headache [Unknown]
  - Weight decreased [Unknown]
  - Proteinuria [Unknown]
  - Dry mouth [Unknown]
  - Renal disorder [Unknown]
  - Cardiac failure [Unknown]
  - Cardiac disorder [Unknown]
  - Head discomfort [Unknown]
  - Pollakiuria [Unknown]

NARRATIVE: CASE EVENT DATE: 2014
